FAERS Safety Report 13486487 (Version 2)
Quarter: 2017Q2

REPORT INFORMATION
  Report Type: Spontaneous
  Country: BR (occurrence: BR)
  Receive Date: 20170426
  Receipt Date: 20170501
  Transmission Date: 20170830
  Serious: Yes (Disabling, Other)
  Sender: FDA-Public Use
  Company Number: BR-ABBVIE-17P-020-1954925-00

PATIENT
  Sex: Male
  Weight: 85 kg

DRUGS (4)
  1. DEPAKENE [Suspect]
     Active Substance: VALPROIC ACID
     Indication: INFANTILE SPASMS
     Dosage: DAILY DOSE: UNKNOWN
     Route: 048
  2. BACLOFEN. [Interacting]
     Active Substance: BACLOFEN
     Indication: MUSCLE SPASMS
     Route: 048
  3. SIRDALUD [Interacting]
     Active Substance: TIZANIDINE
     Indication: MUSCLE SPASMS
     Route: 048
  4. RIVOTRIL [Concomitant]
     Active Substance: CLONAZEPAM
     Indication: INFANTILE SPASMS
     Route: 048

REACTIONS (5)
  - Drug effect incomplete [Recovered/Resolved]
  - Movement disorder [Not Recovered/Not Resolved]
  - Product use issue [Recovered/Resolved]
  - Seizure [Recovered/Resolved]
  - Gait disturbance [Not Recovered/Not Resolved]
